FAERS Safety Report 6057204-4 (Version None)
Quarter: 2009Q1

REPORT INFORMATION
  Report Type: 
  Country: None (occurrence: None)
  Receive Date: 20090129
  Receipt Date: 20080313
  Transmission Date: 20090719
  Serious: No
  Sender: FDA-Public Use
  Company Number: A0716732A

PATIENT
  Age: 54 Year
  Sex: Male

DRUGS (2)
  1. BUPROPION HCL [Suspect]
     Indication: DEPRESSION
     Dosage: 250MG PER DAY
     Route: 048
     Dates: start: 20080101
  2. DESIPRAMINE HCL [Concomitant]
     Indication: DEPRESSION
     Dosage: 175MG AT NIGHT
     Route: 048
     Dates: start: 20080301

REACTIONS (2)
  - FATIGUE [None]
  - POOR QUALITY SLEEP [None]
